FAERS Safety Report 6848113-9 (Version None)
Quarter: 2010Q3

REPORT INFORMATION
  Report Type: 
  Country: None (occurrence: None)
  Receive Date: 20100716
  Receipt Date: 20100709
  Transmission Date: 20110219
  Serious: Yes (Hospitalization, Disabling)
  Sender: FDA-Public Use
  Company Number: A0869491A

PATIENT
  Age: 8 Year
  Sex: Male

DRUGS (2)
  1. LAMICTAL [Suspect]
     Indication: PARTIAL SEIZURES
     Route: 048
     Dates: start: 20100510, end: 20100530
  2. NO CONCURRENT MEDICATION [Concomitant]

REACTIONS (2)
  - MECHANICAL VENTILATION [None]
  - STEVENS-JOHNSON SYNDROME [None]
